FAERS Safety Report 6607980-4 (Version None)
Quarter: 2010Q1

REPORT INFORMATION
  Report Type: 
  Country: None (occurrence: None)
  Receive Date: 20100301
  Receipt Date: 20100218
  Transmission Date: 20100710
  Serious: Yes (Hospitalization)
  Sender: FDA-Public Use
  Company Number: US-BAXTER-2008BH013671

PATIENT
  Age: 68 Year
  Sex: Female
  Weight: 99 kg

DRUGS (17)
  1. GAMMAGARD LIQUID [Suspect]
     Indication: CHRONIC INFLAMMATORY DEMYELINATING POLYRADICULONEUROPATHY
     Route: 042
     Dates: start: 20080707, end: 20080710
  2. GAMMAGARD LIQUID [Suspect]
     Indication: OFF LABEL USE
     Route: 042
     Dates: start: 20080707, end: 20080710
  3. GAMMAGARD LIQUID [Suspect]
     Route: 042
     Dates: start: 20080707, end: 20080710
  4. GAMMAGARD LIQUID [Suspect]
     Route: 042
     Dates: start: 20080707, end: 20080710
  5. GAMMAGARD LIQUID [Suspect]
     Route: 042
     Dates: start: 20080707, end: 20080710
  6. GAMMAGARD LIQUID [Suspect]
     Route: 042
     Dates: start: 20080707, end: 20080710
  7. GAMMAGARD LIQUID [Suspect]
     Route: 042
     Dates: start: 20081129, end: 20081202
  8. GAMMAGARD LIQUID [Suspect]
     Route: 042
     Dates: start: 20081129, end: 20081202
  9. ASPIRIN [Concomitant]
     Dates: start: 20081201
  10. LISINOPRIL [Concomitant]
     Dates: start: 20081201
  11. METFORMIN HYDROCHLORIDE [Concomitant]
  12. PREDNISONE [Concomitant]
     Dates: start: 20081201
  13. FOLIC ACID [Concomitant]
     Dates: start: 20081201
  14. CALCIUM [Concomitant]
     Dates: start: 20081201
  15. VITAMIN D [Concomitant]
     Dates: start: 20081201
  16. IMURAN [Concomitant]
     Dates: start: 20081201
  17. FUROSEMIDE [Concomitant]
     Dates: start: 20081201

REACTIONS (5)
  - BLOOD BILIRUBIN ABNORMAL [None]
  - BLOOD CREATININE ABNORMAL [None]
  - BLOOD URINE PRESENT [None]
  - HAEMOGLOBIN DECREASED [None]
  - HAEMOLYSIS [None]
